FAERS Safety Report 10373683 (Version 1)
Quarter: 2014Q1

REPORT INFORMATION
  Report Type: Spontaneous
  Country: US (occurrence: None)
  Receive Date: 20140306
  Receipt Date: 20140306
  Transmission Date: 20141002
  Serious: Yes (Other)
  Sender: FDA-Public Use
  Company Number: 163-21880-13072474

PATIENT
  Age: 79 Year
  Sex: Female
  Weight: 68 kg

DRUGS (9)
  1. REVLIMID (LENALIDOMIDE) (25 MILLIGRAM, CAPSULES) [Suspect]
     Indication: PLASMA CELL MYELOMA
     Route: 048
     Dates: start: 200708
  2. JANUVIA (SITAGLIPTIN PHOSPHATE) [Concomitant]
  3. COREG (CARVEDILOL) [Concomitant]
  4. PAXIL (PAROXETINE HYDROCHLORIDE) [Concomitant]
  5. RAMIPRIL (RAMIPRIL) [Concomitant]
  6. NORVASC (AMLODIPINE BESILATE) [Concomitant]
  7. ZOMETA (ZOLEDRONIC ACID) [Concomitant]
  8. MINOCYCLINE [Concomitant]
  9. NEXIUM (ESOMEPRAZOLE) [Concomitant]

REACTIONS (2)
  - Oral disorder [None]
  - Infection [None]
